FAERS Safety Report 25320233 (Version 3)
Quarter: 2025Q3

REPORT INFORMATION
  Report Type: Spontaneous
  Country: MX (occurrence: MX)
  Receive Date: 20250515
  Receipt Date: 20250821
  Transmission Date: 20251021
  Serious: Yes (Hospitalization, Other)
  Sender: BIOMARIN
  Company Number: MX-BIOMARINAP-MX-2025-165905

PATIENT
  Sex: Female
  Weight: 6 kg

DRUGS (2)
  1. VOXZOGO [Suspect]
     Active Substance: VOSORITIDE
     Indication: Osteochondrodysplasia
     Dosage: UNK UNK, QD
     Dates: start: 20250217, end: 20250404
  2. VOXZOGO [Suspect]
     Active Substance: VOSORITIDE
     Dosage: UNK, QD
     Dates: start: 20250420, end: 20250422

REACTIONS (4)
  - Spinal decompression [Not Recovered/Not Resolved]
  - Wound secretion [Not Recovered/Not Resolved]
  - Post procedural fistula [Unknown]
  - Hydrocephalus [Unknown]

NARRATIVE: CASE EVENT DATE: 20250401
